FAERS Safety Report 8173727-6 (Version None)
Quarter: 2012Q1

REPORT INFORMATION
  Report Type: 
  Country: None (occurrence: None)
  Receive Date: 20120229
  Receipt Date: 20120223
  Transmission Date: 20120608
  Serious: Yes (Hospitalization)
  Sender: FDA-Public Use
  Company Number: SE-PURDUE-GBR-2012-0009837

PATIENT
  Sex: Male

DRUGS (14)
  1. CALCIPOTRIENE [Concomitant]
     Dosage: 50 MCG/G, UNK
  2. OMEPRAZOLE [Concomitant]
     Dosage: 20 MG, UNK
  3. ACETAMINOPHEN [Concomitant]
     Dosage: 500 MG, UNK
  4. FERROUS SULFATE TAB [Concomitant]
     Dosage: 100 MG, UNK
  5. INSUMAN BASAL [Concomitant]
     Dosage: 100 IE/ML, UNK
  6. HYDROXOCOBALAMIN [Concomitant]
     Dosage: 1 MG, UNK
  7. DERMOVAT                           /00337102/ [Concomitant]
     Dosage: 0.05 %, UNK
  8. LOCOID LIPID [Concomitant]
     Dosage: 0.1 UNK, UNK
  9. ASPIRIN [Concomitant]
     Dosage: 75 MG, UNK
  10. BUPRENORPHINE [Suspect]
     Indication: ARTHRALGIA
     Dosage: 5 MCG, Q1H
     Route: 062
     Dates: start: 20111222, end: 20120101
  11. METFORMIN HCL [Concomitant]
     Dosage: 500 MG, UNK
  12. OXAZEPAM [Concomitant]
     Dosage: 10 MG, UNK
  13. SIMVASTATIN [Concomitant]
     Dosage: 20 MG, UNK
  14. FINASTERID [Concomitant]
     Dosage: 5 MG, UNK

REACTIONS (1)
  - PAROTITIS [None]
